FAERS Safety Report 5069915-8 (Version None)
Quarter: 2006Q3

REPORT INFORMATION
  Report Type: 
  Country: None (occurrence: None)
  Receive Date: 20060731
  Receipt Date: 20060718
  Transmission Date: 20061208
  Serious: Yes (Other)
  Sender: FDA-Public Use
  Company Number: 2006065942

PATIENT
  Age: 22 Year
  Sex: Female

DRUGS (2)
  1. SOLU-CORTEF [Suspect]
     Indication: ASTHMA
  2. SOLU-MEDROL [Suspect]
     Indication: ASTHMA
     Dosage: 125 MG

REACTIONS (3)
  - RASH GENERALISED [None]
  - SHOCK [None]
  - TYPE I HYPERSENSITIVITY [None]
